FAERS Safety Report 13433653 (Version 1)
Quarter: 2017Q2

REPORT INFORMATION
  Report Type: Spontaneous
  Country: AU (occurrence: AU)
  Receive Date: 20170412
  Receipt Date: 20170412
  Transmission Date: 20170830
  Serious: Yes (Other)
  Sender: FDA-Public Use
  Company Number: AU-MYLANLABS-2017M1022067

PATIENT

DRUGS (3)
  1. CYCLOPHOSPHAMIDE. [Concomitant]
     Active Substance: CYCLOPHOSPHAMIDE
     Indication: CHEMOTHERAPY
     Dosage: 600MG/M2
     Route: 065
  2. DOXORUBICIN [Suspect]
     Active Substance: DOXORUBICIN
     Indication: CHEMOTHERAPY
     Dosage: FIRST CYCLE: 85MG (60MG/M2); DILUTED IN 50ML SALINE
     Route: 041
  3. SODIUM CHLORIDE. [Concomitant]
     Active Substance: SODIUM CHLORIDE
     Indication: VEHICLE SOLUTION USE
     Dosage: 50ML OF NORMAL SALINE (USED FOR DILUTING DOXORIBICIN)
     Route: 041

REACTIONS (3)
  - Extravasation [Recovered/Resolved]
  - Pleural effusion [Not Recovered/Not Resolved]
  - Pleuritic pain [Unknown]
